FAERS Safety Report 4713671-7 (Version None)
Quarter: 2005Q3

REPORT INFORMATION
  Report Type: 
  Country: None (occurrence: None)
  Receive Date: 20050713
  Receipt Date: 20050623
  Transmission Date: 20060218
  Serious: Yes (Hospitalization, Other)
  Sender: FDA-Public Use
  Company Number: USA050495829

PATIENT
  Age: 24 Year
  Sex: Female
  Weight: 70.3075 kg

DRUGS (10)
  1. STRATTERA [Suspect]
     Dosage: 80 MG AT BEDTIME
     Dates: start: 20050418
  2. SEROQUEL [Concomitant]
  3. RISPERDAL [Concomitant]
  4. TENEX [Concomitant]
  5. KLONOPIN [Concomitant]
  6. SYNTHROID [Concomitant]
  7. ABILIFY (ARIPRAZOLE) [Concomitant]
  8. DEPAKOTE [Concomitant]
  9. INSULIN [Concomitant]
  10. CYMBALTA [Suspect]

REACTIONS (4)
  - INTENTIONAL MISUSE [None]
  - INTENTIONAL SELF-INJURY [None]
  - OVERDOSE [None]
  - SUICIDE ATTEMPT [None]
